FAERS Safety Report 6425747-7 (Version None)
Quarter: 2009Q4

REPORT INFORMATION
  Report Type: 
  Country: None (occurrence: None)
  Receive Date: 20091029
  Receipt Date: 20091016
  Transmission Date: 20100525
  Serious: Yes (Death, Hospitalization)
  Sender: FDA-Public Use
  Company Number: 2009AC000173

PATIENT
  Age: 56 Year
  Sex: Female

DRUGS (4)
  1. DIGOXIN [Suspect]
     Dosage: 0.125 MG;PO
     Route: 048
     Dates: start: 20041201
  2. LEVAQUIN [Concomitant]
  3. ENALAPRIL [Concomitant]
  4. FUROSEMIDE [Concomitant]

REACTIONS (23)
  - ANOXIC ENCEPHALOPATHY [None]
  - BRADYCARDIA [None]
  - CARDIAC FAILURE CONGESTIVE [None]
  - CARDIO-RESPIRATORY ARREST [None]
  - CARDIOGENIC SHOCK [None]
  - CARDIOMYOPATHY [None]
  - CONFUSIONAL STATE [None]
  - DEVICE CAPTURING ISSUE [None]
  - DISEASE PROGRESSION [None]
  - DYSPNOEA [None]
  - ELECTROMECHANICAL DISSOCIATION [None]
  - EMOTIONAL DISTRESS [None]
  - HYPOTENSION [None]
  - IMPLANTABLE DEFIBRILLATOR INSERTION [None]
  - INCORRECT DOSE ADMINISTERED [None]
  - LEUKOPENIA [None]
  - MULTIPLE INJURIES [None]
  - PACEMAKER GENERATED RHYTHM [None]
  - PAIN [None]
  - PULMONARY OEDEMA [None]
  - RENAL FAILURE [None]
  - UNRESPONSIVE TO STIMULI [None]
  - VIRAL INFECTION [None]
